FAERS Safety Report 12908849 (Version 1)
Quarter: 2016Q4

REPORT INFORMATION
  Report Type: Spontaneous
  Country: CH (occurrence: CH)
  Receive Date: 20161103
  Receipt Date: 20161103
  Transmission Date: 20170207
  Serious: Yes (Hospitalization)
  Sender: FDA-Public Use
  Company Number: CH-009507513-1610CHE013242

PATIENT
  Age: 75 Year
  Sex: Male
  Weight: 78.1 kg

DRUGS (10)
  1. AMLODIPINA MEPHA [Suspect]
     Active Substance: AMLODIPINE BESYLATE
     Dosage: 5 MG, QD
     Route: 048
     Dates: end: 201608
  2. SINTROM [Concomitant]
     Active Substance: ACENOCOUMAROL
     Dosage: DOSAGE ACCORDING TO REGIMEN.
     Route: 048
  3. NITRO-DUR [Suspect]
     Active Substance: NITROGLYCERIN
     Dosage: 1 DF, Q12H, DOSAGE ONE 10 MG-PATCH PER 24 HOURS
     Route: 062
  4. ASPIRIN CARDIO [Concomitant]
     Active Substance: ASPIRIN
     Dosage: 100 MG, QD
     Route: 048
  5. PREDNISONE. [Concomitant]
     Active Substance: PREDNISONE
     Dosage: 10 MG, QD
     Route: 048
  6. PANTOZOL [Concomitant]
     Active Substance: PANTOPRAZOLE SODIUM
     Dosage: 40 MG, QD
     Route: 048
  7. BELOC-ZOK [Suspect]
     Active Substance: METOPROLOL SUCCINATE
     Dosage: 50 MG, BID
     Route: 048
  8. TORASEMID SANDOZ [Suspect]
     Active Substance: TORSEMIDE
     Dosage: 10 MG, QD
     Route: 048
  9. PRAVASTATIN MEPHA [Concomitant]
     Dosage: 40 MG, QD
     Route: 048
  10. ENALAPRIL MEPHA [Suspect]
     Active Substance: ENALAPRIL
     Dosage: 5 MG, BID
     Route: 048

REACTIONS (2)
  - Asthenia [Recovered/Resolved]
  - Syncope [Recovered/Resolved]

NARRATIVE: CASE EVENT DATE: 201608
